FAERS Safety Report 16082896 (Version 2)
Quarter: 2019Q2

REPORT INFORMATION
  Report Type: Spontaneous
  Country: US (occurrence: US)
  Receive Date: 20190318
  Receipt Date: 20190402
  Transmission Date: 20190711
  Serious: Yes (Death, Other)
  Sender: FDA-Public Use
  Company Number: US-HORIZON-BUP-0016-2019

PATIENT
  Age: 3 Year
  Sex: Female

DRUGS (3)
  1. BUPHENYL [Suspect]
     Active Substance: SODIUM PHENYLBUTYRATE
     Indication: METHYLMALONIC ACIDURIA
     Dosage: 1.7 G THREE TIMES DAILY
     Dates: start: 201802
  2. FIRST-OMEPRAZOLE SUSPENSION [Concomitant]
  3. IRON SUPPLEMENT [Concomitant]
     Active Substance: IRON

REACTIONS (5)
  - Sepsis [Not Recovered/Not Resolved]
  - Renal failure [Not Recovered/Not Resolved]
  - Death [Fatal]
  - Shock [Not Recovered/Not Resolved]
  - Off label use [Unknown]

NARRATIVE: CASE EVENT DATE: 20190221
